FAERS Safety Report 15637748 (Version 2)
Quarter: 2018Q4

REPORT INFORMATION
  Report Type: Spontaneous
  Country: US (occurrence: US)
  Receive Date: 20181120
  Receipt Date: 20181122
  Transmission Date: 20190205
  Serious: Yes (Hospitalization, Other)
  Sender: FDA-Public Use
  Company Number: US-B.I. PHARMACEUTICALS,INC./RIDGEFIELD-2018-BI-055740

PATIENT
  Sex: Male

DRUGS (1)
  1. COMBIVENT [Suspect]
     Active Substance: ALBUTEROL SULFATE\IPRATROPIUM BROMIDE
     Indication: PRODUCT USED FOR UNKNOWN INDICATION
     Dosage: FORM STRENGTH: 20 MCG / 100 MCG;? ADMINISTRATION CORRECT? NR?ACTION(S) TAKEN WITH PRODUCT: NR
     Route: 065

REACTIONS (3)
  - Fall [Unknown]
  - Peripheral artery occlusion [Unknown]
  - Hip fracture [Unknown]

NARRATIVE: CASE EVENT DATE: 2018
